FAERS Safety Report 25233010 (Version 1)
Quarter: 2025Q2

REPORT INFORMATION
  Report Type: Spontaneous
  Country: US (occurrence: US)
  Receive Date: 20250424
  Receipt Date: 20250424
  Transmission Date: 20250716
  Serious: No
  Sender: ROCHE
  Company Number: US-ROCHE-10000262213

PATIENT
  Age: 68 Year
  Sex: Male

DRUGS (7)
  1. ACTEMRA [Suspect]
     Active Substance: TOCILIZUMAB
     Indication: Giant cell arteritis
     Route: 065
  2. Oxygen per nasal cannula [Concomitant]
  3. diphenhydramine IVP [Concomitant]
     Route: 042
  4. solumedrol IVP [Concomitant]
     Route: 042
  5. Tylenol PO [Concomitant]
     Route: 048
  6. NS drip [Concomitant]
     Route: 042
  7. Benadryl IVP [Concomitant]
     Route: 042

REACTIONS (8)
  - Cough [Unknown]
  - Flushing [Unknown]
  - Ocular hyperaemia [Unknown]
  - Chest pain [Unknown]
  - Nausea [Unknown]
  - Chills [Unknown]
  - Tremor [Unknown]
  - Oxygen saturation decreased [Unknown]
